FAERS Safety Report 14897963 (Version 2)
Quarter: 2018Q2

REPORT INFORMATION
  Report Type: Spontaneous
  Country: US (occurrence: US)
  Receive Date: 20180515
  Receipt Date: 20180517
  Transmission Date: 20180711
  Serious: No
  Sender: FDA-Public Use
  Company Number: US-SA-2017SA232915

PATIENT
  Age: 53 Year
  Sex: Female

DRUGS (4)
  1. SOLOSTAR [Suspect]
     Active Substance: DEVICE
     Dates: start: 201703, end: 20170725
  2. TOUJEO [Suspect]
     Active Substance: INSULIN GLARGINE
     Dosage: DOSE:19 UNIT(S)
     Route: 051
     Dates: start: 2017
  3. SOLOSTAR [Suspect]
     Active Substance: DEVICE
     Dates: start: 2017
  4. TOUJEO [Suspect]
     Active Substance: INSULIN GLARGINE
     Dosage: DOSE:19 UNIT(S)
     Route: 051
     Dates: start: 201703, end: 20170725

REACTIONS (4)
  - Blood glucose abnormal [Unknown]
  - Intentional product misuse [Unknown]
  - Weight increased [Unknown]
  - Drug dose omission [Unknown]

NARRATIVE: CASE EVENT DATE: 201707
